FAERS Safety Report 5441963-5 (Version None)
Quarter: 2007Q3

REPORT INFORMATION
  Report Type: 
  Country: None (occurrence: None)
  Receive Date: 20070904
  Receipt Date: 20070821
  Transmission Date: 20080115
  Serious: Yes (Other)
  Sender: FDA-Public Use
  Company Number: B0477289A

PATIENT
  Age: 45 Year
  Sex: Male
  Weight: 88 kg

DRUGS (5)
  1. AVANDAMET [Suspect]
     Dosage: 2TAB PER DAY
     Route: 048
     Dates: start: 20060501, end: 20061101
  2. INEGY [Concomitant]
     Route: 048
     Dates: start: 20061020, end: 20061101
  3. TRIATEC [Concomitant]
     Dosage: 5MG PER DAY
     Route: 048
     Dates: start: 20030101
  4. FLODIL [Concomitant]
     Dosage: 5MG PER DAY
     Route: 048
     Dates: start: 20030101
  5. COAPROVEL [Concomitant]
     Route: 048
     Dates: start: 20030101

REACTIONS (2)
  - ABDOMINAL PAIN UPPER [None]
  - BLOOD AMYLASE INCREASED [None]
